FAERS Safety Report 4375934-7 (Version None)
Quarter: 2004Q2

REPORT INFORMATION
  Report Type: 
  Country: None (occurrence: None)
  Receive Date: 20040607
  Receipt Date: 20040526
  Transmission Date: 20050107
  Serious: Yes (Hospitalization, Other)
  Sender: FDA-Public Use
  Company Number: HQWYE767810MAY04

PATIENT
  Age: 40 Year
  Sex: Male

DRUGS (8)
  1. RAPAMUNE [Suspect]
     Indication: CORONARY ARTERY STENOSIS
  2. RAPAMUNE [Suspect]
     Indication: PROPHYLAXIS
  3. SIMVASTATIN [Concomitant]
  4. ACETYLSALICYLIC ACID SRT [Concomitant]
  5. ATENOLOL [Concomitant]
  6. NPH INSULIN(INSULIN INJECTION, ISOPHANE0 [Concomitant]
  7. INSULIN [Concomitant]
  8. CAPTOPRIL [Concomitant]

REACTIONS (1)
  - ANGINA UNSTABLE [None]
